FAERS Safety Report 25846426 (Version 2)
Quarter: 2025Q4

REPORT INFORMATION
  Report Type: Spontaneous
  Country: JP (occurrence: JP)
  Receive Date: 20250925
  Receipt Date: 20251119
  Transmission Date: 20260117
  Serious: Yes (Other)
  Sender: PFIZER
  Company Number: JP-GENMAB-2025-02796

PATIENT
  Age: 6 Decade
  Sex: Female

DRUGS (2)
  1. TIVDAK [Suspect]
     Active Substance: TISOTUMAB VEDOTIN-TFTV
     Indication: Cervix carcinoma
     Dosage: 2 MILLIGRAM/KILOGRAM
     Route: 042
     Dates: start: 20250822, end: 20251003
  2. BRIMONIDINE TARTRATE [Concomitant]
     Active Substance: BRIMONIDINE TARTRATE
     Indication: Eye disorder prophylaxis
     Dosage: UNK, OPHTHALMIC INSTILLATION
     Dates: start: 20250822

REACTIONS (4)
  - Skin disorder [Recovered/Resolved]
  - Cervix carcinoma [Unknown]
  - Malignant neoplasm progression [Unknown]
  - Conjunctivitis [Recovered/Resolved]

NARRATIVE: CASE EVENT DATE: 20250101
